FAERS Safety Report 8013452-5 (Version None)
Quarter: 2011Q4

REPORT INFORMATION
  Report Type: 
  Country: None (occurrence: None)
  Receive Date: 20111229
  Receipt Date: 20111227
  Transmission Date: 20120403
  Serious: Yes (Other)
  Sender: FDA-Public Use
  Company Number: US-PFIZER INC-2011313587

PATIENT
  Sex: Male
  Weight: 62.132 kg

DRUGS (2)
  1. ACETAMINOPHEN [Concomitant]
     Indication: HEADACHE
     Dosage: UNK
  2. VIAGRA [Suspect]
     Indication: ERECTILE DYSFUNCTION
     Dosage: 100 MG, AS NEEDED
     Route: 048
     Dates: start: 20111207

REACTIONS (3)
  - ERECTION INCREASED [None]
  - DYSURIA [None]
  - FLUSHING [None]
